FAERS Safety Report 14853549 (Version 4)
Quarter: 2018Q2

REPORT INFORMATION
  Report Type: Spontaneous
  Country: FR (occurrence: FR)
  Receive Date: 20180507
  Receipt Date: 20180508
  Transmission Date: 20180711
  Serious: Yes (Other)
  Sender: FDA-Public Use
  Company Number: FR-TEVA-2018-FR-889446

PATIENT
  Age: 79 Year
  Sex: Male

DRUGS (7)
  1. TRANXENE 20 MG/2 ML, LYOPHILISATE AND SOLUTION FOR PARENTERAL USE [Concomitant]
     Indication: ANXIETY
     Dosage: LYOPHILISATE AND SOLUTION FOR PARENTERAL USE
     Route: 042
  2. ACIDE FOLINIQUE [Suspect]
     Active Substance: LEUCOVORIN
     Indication: COLORECTAL CANCER
     Route: 042
  3. AVASTIN [Suspect]
     Active Substance: BEVACIZUMAB
     Indication: COLORECTAL CANCER
     Route: 042
  4. SOLUMEDROL 20 MG/2 ML, LYOPHILISATE AND SOLUTION FOR PARENTERAL USE [Concomitant]
     Indication: ALLERGY PROPHYLAXIS
     Dosage: LYOPHILISATE AND SOLUTION FOR PARENTERAL USE
     Route: 042
  5. IRINOTECAN [Suspect]
     Active Substance: IRINOTECAN
     Indication: COLORECTAL CANCER
     Route: 042
  6. ZOPHREN 8 MG, COATED TABLET [Concomitant]
     Indication: PROPHYLAXIS OF NAUSEA AND VOMITING
     Route: 042
  7. FLUOROURACILE [Suspect]
     Active Substance: FLUOROURACIL
     Indication: COLORECTAL CANCER
     Route: 042

REACTIONS (2)
  - Ulcer [Recovering/Resolving]
  - Complication associated with device [Recovering/Resolving]
